FAERS Safety Report 21359589 (Version 1)
Quarter: 2022Q3

REPORT INFORMATION
  Report Type: Spontaneous
  Country: JP (occurrence: JP)
  Receive Date: 20220921
  Receipt Date: 20220921
  Transmission Date: 20221027
  Serious: Yes (Other)
  Sender: FDA-Public Use
  Company Number: JP-ADVANZ PHARMA-202209006217

PATIENT

DRUGS (6)
  1. HYDROXYCHLOROQUINE SULFATE [Suspect]
     Active Substance: HYDROXYCHLOROQUINE SULFATE
     Indication: Systemic lupus erythematosus
     Dosage: 200 MG, QD (AFTER BREAKFAST FOR 5 DAYS A WEEK FROM MONDAY TO FRIDAY)
     Route: 048
     Dates: start: 20220111
  2. ALFACALCIDOL [Concomitant]
     Active Substance: ALFACALCIDOL
     Indication: Product used for unknown indication
     Dosage: UNK
     Dates: start: 20220111
  3. LOXOPROFEN SODIUM [Concomitant]
     Active Substance: LOXOPROFEN SODIUM
     Indication: Product used for unknown indication
     Dosage: UNK
     Dates: start: 20220111
  4. VALACYCLOVIR HYDROCHLORIDE [Concomitant]
     Active Substance: VALACYCLOVIR HYDROCHLORIDE
     Indication: Product used for unknown indication
     Dosage: UNK
     Dates: start: 20220111
  5. AMLODIPINE [Concomitant]
     Active Substance: AMLODIPINE BESYLATE
     Indication: Product used for unknown indication
     Dosage: UNK
     Dates: start: 20220111
  6. ASPIRIN [Concomitant]
     Active Substance: ASPIRIN
     Indication: Product used for unknown indication
     Dosage: UNK
     Dates: start: 20220111

REACTIONS (8)
  - Prinzmetal angina [Unknown]
  - Cerebral infarction [Recovered/Resolved]
  - Muscular weakness [Recovered/Resolved]
  - Language disorder [Recovered/Resolved]
  - Dysphonia [Recovered/Resolved]
  - Aphasia [Recovered/Resolved]
  - Blood immunoglobulin G increased [Recovered/Resolved]
  - Antibody test abnormal [Recovered/Resolved]
